FAERS Safety Report 7672109-0 (Version None)
Quarter: 2011Q3

REPORT INFORMATION
  Report Type: 
  Country: None (occurrence: None)
  Receive Date: 20110809
  Receipt Date: 20110802
  Transmission Date: 20111222
  Serious: Yes (Hospitalization)
  Sender: FDA-Public Use
  Company Number: PHHY2011TR69782

PATIENT
  Sex: Male

DRUGS (1)
  1. EXJADE [Suspect]
     Indication: THALASSAEMIA BETA
     Dosage: UNK UKN, UNK
     Dates: start: 20110101

REACTIONS (4)
  - CARDIAC FAILURE [None]
  - BLOOD GLUCOSE INCREASED [None]
  - VOMITING [None]
  - RENAL FAILURE [None]
